FAERS Safety Report 23583929 (Version 1)
Quarter: 2024Q1

REPORT INFORMATION
  Report Type: Spontaneous
  Country: US (occurrence: US)
  Receive Date: 20240301
  Receipt Date: 20240301
  Transmission Date: 20240410
  Serious: Yes (Hospitalization, Other)
  Sender: FDA-Public Use
  Company Number: US-SPECGX-T202302142

PATIENT
  Age: 6 Decade
  Sex: Female

DRUGS (10)
  1. METHADONE [Suspect]
     Active Substance: METHADONE HYDROCHLORIDE
     Indication: Analgesic therapy
     Dosage: 10 MILLIGRAM, Q8H
     Route: 065
  2. FENTANYL TRANSDERMAL SYSTEM [Suspect]
     Active Substance: FENTANYL
     Indication: Analgesic therapy
     Dosage: UNK
     Route: 062
  3. MORPHINE [Suspect]
     Active Substance: MORPHINE
     Indication: Analgesic therapy
     Dosage: 30 MILLIGRAM, Q12H
     Route: 065
  4. MORPHINE [Suspect]
     Active Substance: MORPHINE
     Dosage: 30 MILLIGRAM, Q8H
     Route: 065
  5. OXYCODONE [Suspect]
     Active Substance: OXYCODONE\OXYCODONE HYDROCHLORIDE
     Indication: Analgesic therapy
     Dosage: 15 MILLIGRAM, PRN (EVERY 4 HOURS AS NEEDED)
     Route: 065
  6. MORPHINE [Suspect]
     Active Substance: MORPHINE
     Indication: Analgesic therapy
     Dosage: 7.5 MILLIGRAM, PRN (MORPHINE IMMEDIATE RELEASE 7.5 MG EVERY FOUR HOURS AS NEEDED)
     Route: 065
  7. OXYCODONE [Suspect]
     Active Substance: OXYCODONE\OXYCODONE HYDROCHLORIDE
     Indication: Analgesic therapy
     Dosage: 36 MILLIGRAM, Q8H (EXTENDED-RELEASE)
     Route: 065
  8. GABAPENTIN [Concomitant]
     Active Substance: GABAPENTIN
     Indication: Analgesic therapy
     Dosage: 300 MILLIGRAM, Q8H
     Route: 065
  9. TRAMADOL [Concomitant]
     Active Substance: TRAMADOL\TRAMADOL HYDROCHLORIDE
     Indication: Analgesic therapy
     Dosage: 50 MILLIGRAM, PRN (EVERY EIGHT HOURS AS NEEDED)
     Route: 065
  10. DULOXETINE [Concomitant]
     Active Substance: DULOXETINE
     Indication: Analgesic therapy
     Dosage: 60 MILLIGRAM, QD
     Route: 065

REACTIONS (4)
  - Pain [Recovering/Resolving]
  - Neurotoxicity [Recovered/Resolved]
  - Electrocardiogram QT prolonged [Unknown]
  - Drug ineffective [Unknown]
